FAERS Safety Report 17204371 (Version 5)
Quarter: 2020Q1

REPORT INFORMATION
  Report Type: Report from Study
  Country: US (occurrence: US)
  Receive Date: 20191226
  Receipt Date: 20200317
  Transmission Date: 20200409
  Serious: Yes (Hospitalization)
  Sender: FDA-Public Use
  Company Number: US-ACTELION-A-US2019-187941

PATIENT
  Age: 56 Year
  Sex: Female
  Weight: 66.21 kg

DRUGS (2)
  1. ADEMPAS [Concomitant]
     Active Substance: RIOCIGUAT
  2. OPSUMIT [Suspect]
     Active Substance: MACITENTAN
     Indication: PULMONARY ARTERIAL HYPERTENSION
     Dosage: 10 MG, QD
     Route: 048

REACTIONS (12)
  - Dyspnoea [Unknown]
  - Anaemia [Unknown]
  - Treatment noncompliance [Recovered/Resolved]
  - Confusional state [Unknown]
  - Product dose omission [Recovered/Resolved]
  - Emergency care [Unknown]
  - Epistaxis [Unknown]
  - Cough [Unknown]
  - Fluid retention [Unknown]
  - Malaise [Unknown]
  - Blood disorder [Unknown]
  - Cognitive linguistic deficit [Unknown]

NARRATIVE: CASE EVENT DATE: 20190308
